FAERS Safety Report 9911529 (Version 1)
Quarter: 2014Q1

REPORT INFORMATION
  Report Type: Report from Study
  Country: BR (occurrence: BR)
  Receive Date: 20140219
  Receipt Date: 20140219
  Transmission Date: 20141002
  Serious: Yes (Other)
  Sender: FDA-Public Use
  Company Number: PHHY2014BR018964

PATIENT
  Age: 56 Year
  Sex: Female
  Weight: 87 kg

DRUGS (4)
  1. DIOVAN AMLO FIX [Suspect]
     Indication: ARTERIAL DISORDER
     Dosage: 1 DF (320MG VALS AND 10MG AMLO), A DAY
     Route: 048
  2. LEVOID [Concomitant]
     Indication: THYROID DISORDER
     Dosage: UNK UKN, UNK
  3. MERITOR [Concomitant]
     Indication: DIABETES MELLITUS
     Dosage: UNK UKN, UNK
  4. SOMALGIN [Concomitant]
     Indication: ANTICOAGULANT THERAPY
     Dosage: UNK UKN, UNK

REACTIONS (2)
  - Carotid artery occlusion [Not Recovered/Not Resolved]
  - Oedema peripheral [Not Recovered/Not Resolved]
